FAERS Safety Report 12154631 (Version 4)
Quarter: 2016Q2

REPORT INFORMATION
  Report Type: Report from Study
  Country: BR (occurrence: BR)
  Receive Date: 20160307
  Receipt Date: 20160614
  Transmission Date: 20160815
  Serious: Yes (Hospitalization, Other)
  Sender: FDA-Public Use
  Company Number: PHHY2015BR120145

PATIENT
  Age: 37 Year
  Sex: Male
  Weight: 75 kg

DRUGS (4)
  1. CYCLOSPORINE. [Concomitant]
     Active Substance: CYCLOSPORINE
     Indication: BONE MARROW FAILURE
     Dosage: 2 DF, QD (IN THE MORNING AND IN THE EVENING)
     Route: 048
     Dates: start: 201503
  2. EXJADE [Suspect]
     Active Substance: DEFERASIROX
     Indication: APLASTIC ANAEMIA
     Dosage: 3 DF (20 MG/KG), QD
     Route: 048
     Dates: start: 201503
  3. EXJADE [Suspect]
     Active Substance: DEFERASIROX
     Indication: MYELODYSPLASTIC SYNDROME
     Dosage: 2 DF (15 MG/KG), QD
     Route: 048
     Dates: start: 201508
  4. MAGNESIUM [Concomitant]
     Active Substance: MAGNESIUM
     Indication: MAGNESIUM DEFICIENCY
     Dosage: 2 DF, QD
     Route: 048

REACTIONS (12)
  - Diarrhoea [Recovering/Resolving]
  - Concomitant disease aggravated [Recovering/Resolving]
  - Blood iron increased [Unknown]
  - Chromaturia [Unknown]
  - Abdominal pain upper [Recovering/Resolving]
  - Cholecystitis [Recovered/Resolved]
  - Pain in extremity [Not Recovered/Not Resolved]
  - Abdominal pain [Recovered/Resolved]
  - Muscle spasms [Not Recovered/Not Resolved]
  - Weight decreased [Recovering/Resolving]
  - Urine iron [Unknown]
  - Abdominal distension [Recovering/Resolving]

NARRATIVE: CASE EVENT DATE: 201503
